FAERS Safety Report 16446887 (Version 1)
Quarter: 2019Q2

REPORT INFORMATION
  Report Type: Spontaneous
  Country: CN (occurrence: CN)
  Receive Date: 20190618
  Receipt Date: 20190618
  Transmission Date: 20190711
  Serious: Yes (Hospitalization, Other)
  Sender: FDA-Public Use
  Company Number: CN-SA-2019SA164549

PATIENT
  Age: 88 Year
  Sex: Female

DRUGS (5)
  1. LEVAMLODIPINE [Concomitant]
     Active Substance: LEVAMLODIPINE
  2. NIMESULIDE [Suspect]
     Active Substance: NIMESULIDE
     Dosage: UNK
  3. TRYPSIN [Concomitant]
     Active Substance: TRYPSIN
  4. HYDROCHLOROTHIAZIDE/IRBESARTAN [Suspect]
     Active Substance: HYDROCHLOROTHIAZIDE\IRBESARTAN
     Dosage: UNK
  5. COLCHICINE. [Concomitant]
     Active Substance: COLCHICINE

REACTIONS (1)
  - Drug-induced liver injury [Recovering/Resolving]
